FAERS Safety Report 16630757 (Version 1)
Quarter: 2019Q3

REPORT INFORMATION
  Report Type: Spontaneous
  Country: JP (occurrence: JP)
  Receive Date: 20190725
  Receipt Date: 20190725
  Transmission Date: 20191004
  Serious: Yes (Other)
  Sender: FDA-Public Use
  Company Number: PHJP2019JP009499

PATIENT
  Age: 37 Year
  Sex: Female

DRUGS (1)
  1. IMUSERA [Suspect]
     Active Substance: FINGOLIMOD HYDROCHLORIDE
     Indication: MULTIPLE SCLEROSIS
     Dosage: UNK, QOD
     Route: 048

REACTIONS (3)
  - Immune thrombocytopenic purpura [Recovering/Resolving]
  - Lymphocyte count decreased [Unknown]
  - Purpura [Unknown]
